FAERS Safety Report 16918530 (Version 1)
Quarter: 2019Q4

REPORT INFORMATION
  Report Type: Spontaneous
  Country: CH (occurrence: CH)
  Receive Date: 20191015
  Receipt Date: 20191015
  Transmission Date: 20200122
  Serious: Yes (Other)
  Sender: FDA-Public Use
  Company Number: CH-PFIZER INC-2019438642

PATIENT
  Age: 18 Year
  Sex: Female

DRUGS (1)
  1. ALDACTONE [Suspect]
     Active Substance: SPIRONOLACTONE
     Indication: HIRSUTISM
     Dosage: 50 MG, DAILY
     Route: 048
     Dates: start: 201808

REACTIONS (5)
  - Gingival pain [Not Recovered/Not Resolved]
  - Off label use [Not Recovered/Not Resolved]
  - Gingival hypertrophy [Not Recovered/Not Resolved]
  - Gingival bleeding [Not Recovered/Not Resolved]
  - Drug effective for unapproved indication [Not Recovered/Not Resolved]

NARRATIVE: CASE EVENT DATE: 201808
